FAERS Safety Report 18321126 (Version 1)
Quarter: 2020Q3

REPORT INFORMATION
  Report Type: Report from Study
  Country: None (occurrence: MX)
  Receive Date: 20200929
  Receipt Date: 20200929
  Transmission Date: 20201103
  Serious: Yes (Disabling)
  Sender: FDA-Public Use
  Company Number: MX-ABBVIE-20K-107-3584419-00

PATIENT
  Sex: Female
  Weight: 50 kg

DRUGS (1)
  1. HUMIRA [Suspect]
     Active Substance: ADALIMUMAB
     Indication: RHEUMATOID ARTHRITIS
     Dosage: 1 EVERY 6 TO 8 WEEKS
     Route: 058
     Dates: start: 20110301

REACTIONS (5)
  - Anxiety [Unknown]
  - Malaise [Unknown]
  - Hypoaesthesia [Unknown]
  - Wheelchair user [Unknown]
  - Off label use [Unknown]

NARRATIVE: CASE EVENT DATE: 2020
